FAERS Safety Report 23279562 (Version 1)
Quarter: 2023Q4

REPORT INFORMATION
  Report Type: Report from Study
  Country: US (occurrence: US)
  Receive Date: 20231210
  Receipt Date: 20231210
  Transmission Date: 20240109
  Serious: Yes (Other)
  Sender: FDA-Public Use
  Company Number: US-AUROBINDO-AUR-APL-2023-068854

PATIENT
  Age: 18 Year
  Sex: Female

DRUGS (5)
  1. DULOXETINE [Suspect]
     Active Substance: DULOXETINE
     Indication: Vulvovaginal pain
     Dosage: UNK
     Route: 065
  2. GABAPENTIN [Suspect]
     Active Substance: GABAPENTIN
     Indication: Vulvovaginal pain
     Dosage: UNK
     Route: 048
  3. TIZANIDINE HYDROCHLORIDE [Suspect]
     Active Substance: TIZANIDINE HYDROCHLORIDE
     Indication: Vulvovaginal pain
     Dosage: UNK
     Route: 065
  4. DIAZEPAM [Suspect]
     Active Substance: DIAZEPAM
     Indication: Vulvovaginal pain
     Dosage: UNK
     Route: 054
  5. ESTROGENS\TESTOSTERONE [Suspect]
     Active Substance: ESTROGENS\TESTOSTERONE
     Indication: Vulvovaginal pain
     Dosage: UNK
     Route: 061

REACTIONS (1)
  - Drug ineffective [Unknown]
